FAERS Safety Report 15549693 (Version 1)
Quarter: 2018Q4

REPORT INFORMATION
  Report Type: Spontaneous
  Country: US (occurrence: US)
  Receive Date: 20181024
  Receipt Date: 20181024
  Transmission Date: 20190205
  Serious: No
  Sender: FDA-Public Use
  Company Number: None

PATIENT
  Age: 39 Year
  Sex: Female

DRUGS (13)
  1. MELATONIN [Concomitant]
     Active Substance: MELATONIN
  2. AIMOVIG [Suspect]
     Active Substance: ERENUMAB-AOOE
     Indication: MIGRAINE
     Dosage: ?          QUANTITY:1 INJECTION(S);OTHER FREQUENCY:MONTHLY;?
     Route: 030
     Dates: start: 20180911
  3. CELECOXIB. [Concomitant]
     Active Substance: CELECOXIB
  4. HALOPERIDOL/HALDOL [Concomitant]
  5. MG [Concomitant]
     Active Substance: MAGNESIUM
  6. OMEPRAZOLE DR [Concomitant]
     Active Substance: OMEPRAZOLE
  7. C [Concomitant]
  8. NORTRIPTYLNE HCL [Concomitant]
  9. KETORLAC/TORADOL [Concomitant]
  10. BENZTROPINE/COGENTIN MES [Concomitant]
  11. B2 [Concomitant]
  12. MIRENA [Concomitant]
     Active Substance: LEVONORGESTREL
  13. DICLOFENAC SOD EC [Concomitant]
     Active Substance: DICLOFENAC SODIUM

REACTIONS (5)
  - Drug ineffective [None]
  - Constipation [None]
  - Gastrooesophageal reflux disease [None]
  - Abnormal dreams [None]
  - Dyspepsia [None]

NARRATIVE: CASE EVENT DATE: 20181015
